FAERS Safety Report 12423498 (Version 1)
Quarter: 2016Q2

REPORT INFORMATION
  Report Type: Spontaneous
  Country: US (occurrence: None)
  Receive Date: 20160531
  Receipt Date: 20160531
  Transmission Date: 20160815
  Serious: Yes (Life-Threatening, Hospitalization, Disabling)
  Sender: FDA-Public Use
  Company Number: None

PATIENT
  Age: 34 Year
  Sex: Male
  Weight: 90.72 kg

DRUGS (6)
  1. CIPROFLOXACIN GENERIC [Suspect]
     Active Substance: CIPROFLOXACIN
     Indication: ARTHRITIS INFECTIVE
     Route: 048
     Dates: start: 20131107, end: 20131117
  2. CAPRYLLIC ACID [Concomitant]
  3. PROBIOTICS [Concomitant]
     Active Substance: PROBIOTICS NOS
  4. CIPROFLOXACIN GENERIC [Suspect]
     Active Substance: CIPROFLOXACIN
     Indication: SKIN BACTERIAL INFECTION
     Route: 048
     Dates: start: 20131107, end: 20131117
  5. ECHINACEA [Concomitant]
     Active Substance: ECHINACEA, UNSPECIFIED
  6. MULTIVITAMIN [Concomitant]
     Active Substance: VITAMINS

REACTIONS (22)
  - Head injury [None]
  - Memory impairment [None]
  - Depersonalisation/derealisation disorder [None]
  - Dry throat [None]
  - Dizziness [None]
  - Panic reaction [None]
  - Pain [None]
  - Tooth disorder [None]
  - Fatigue [None]
  - Visual impairment [None]
  - Psychotic disorder [None]
  - Asthenia [None]
  - Feeling abnormal [None]
  - Heart rate decreased [None]
  - Diplopia [None]
  - Tinnitus [None]
  - Throat irritation [None]
  - Hypoaesthesia [None]
  - Autonomic nervous system imbalance [None]
  - Fall [None]
  - Hypotension [None]
  - Insomnia [None]

NARRATIVE: CASE EVENT DATE: 20160506
